FAERS Safety Report 8155623-3 (Version None)
Quarter: 2012Q1

REPORT INFORMATION
  Report Type: 
  Country: None (occurrence: None)
  Receive Date: 20120222
  Receipt Date: 20120216
  Transmission Date: 20120608
  Serious: Yes (Other)
  Sender: FDA-Public Use
  Company Number: US-PFIZER INC-2011249394

PATIENT
  Sex: Female
  Weight: 52.2 kg

DRUGS (4)
  1. LYRICA [Suspect]
     Dosage: 50 MG, 2X/DAY
     Route: 048
     Dates: start: 20110101, end: 20111001
  2. PRILOSEC [Concomitant]
     Dosage: 20 MG
  3. LYRICA [Suspect]
     Indication: NEURALGIA
     Dosage: 50 MG, 1X/DAY
     Route: 048
     Dates: start: 20110801, end: 20110101
  4. PORTIA-21 [Concomitant]
     Indication: CONTRACEPTION
     Dosage: UNK

REACTIONS (2)
  - SUICIDAL IDEATION [None]
  - DEPRESSION [None]
